FAERS Safety Report 4425042-1 (Version None)
Quarter: 2004Q3

REPORT INFORMATION
  Report Type: 
  Country: None (occurrence: None)
  Receive Date: 20040813
  Receipt Date: 20040106
  Transmission Date: 20050211
  Serious: Yes (Death, Life-Threatening, Other)
  Sender: FDA-Public Use
  Company Number: 200410009JP

PATIENT
  Age: 54 Year
  Sex: Female
  Weight: 50 kg

DRUGS (39)
  1. ARAVA [Suspect]
     Indication: RHEUMATOID ARTHRITIS
     Route: 048
     Dates: start: 20031222, end: 20040105
  2. PREDONINE [Concomitant]
     Indication: AUTOIMMUNE DISORDER
     Route: 048
     Dates: start: 20040217, end: 20040317
  3. PREDONINE [Concomitant]
     Indication: HYPERPYREXIA
     Route: 048
     Dates: start: 20040217, end: 20040317
  4. PREDONINE [Concomitant]
     Indication: RHEUMATOID ARTHRITIS
     Route: 048
     Dates: start: 20040217, end: 20040317
  5. INFREE S [Concomitant]
     Indication: RHEUMATOID ARTHRITIS
     Route: 048
     Dates: end: 20040105
  6. MINOMYCIN [Concomitant]
     Route: 048
     Dates: end: 20040105
  7. RHEUMATREX [Concomitant]
     Indication: RHEUMATOID ARTHRITIS
     Dosage: DOSE: 8MG/WEEK
     Route: 048
     Dates: end: 20040105
  8. FOLIAMIN [Concomitant]
     Dosage: DOSE: 5MG/WEEK
     Route: 048
     Dates: end: 20040105
  9. VOLTAREN SUPPOSITORIEN [Concomitant]
     Indication: RHEUMATOID ARTHRITIS
     Route: 054
     Dates: end: 20040105
  10. MAGNESIUM OXIDE [Concomitant]
     Indication: CONSTIPATION
     Route: 048
     Dates: start: 20040113, end: 20040129
  11. MYSLEE [Concomitant]
     Indication: INSOMNIA
     Route: 048
     Dates: start: 20040113
  12. FOSMICIN [Concomitant]
     Route: 042
     Dates: start: 20040105, end: 20040119
  13. CEFOTIAM HYDROCHLORIDE [Concomitant]
     Indication: PYREXIA
     Route: 042
     Dates: start: 20040106, end: 20040110
  14. CEFMETAZON [Concomitant]
     Indication: PYREXIA
     Route: 042
     Dates: start: 20040111, end: 20040113
  15. KAKODIN [Concomitant]
     Indication: SHOCK
     Route: 042
     Dates: start: 20040105, end: 20040118
  16. PREDONINE [Concomitant]
     Indication: RHEUMATOID ARTHRITIS
     Route: 042
     Dates: start: 20040106, end: 20040122
  17. PHYSIO [Concomitant]
     Indication: ELECTROLYTE SUBSTITUTION THERAPY
     Route: 041
     Dates: start: 20040105, end: 20040106
  18. PHYSIO [Concomitant]
     Indication: FLUID REPLACEMENT
     Route: 041
     Dates: start: 20040105, end: 20040106
  19. AMINOTRIPA 1 [Concomitant]
     Route: 041
     Dates: start: 20040107, end: 20040203
  20. MVI                                     /USA/ [Concomitant]
     Route: 041
     Dates: start: 20040107, end: 20040203
  21. ELEMENMIC [Concomitant]
     Dosage: DOSE: 1A
     Route: 041
     Dates: start: 20040107, end: 20040203
  22. ELIETEN [Concomitant]
     Indication: VOMITING
     Route: 041
     Dates: start: 20040106, end: 20040113
  23. ASPARA K [Concomitant]
     Indication: HYPOKALAEMIA
     Dosage: DOSE: 1A
     Route: 041
     Dates: start: 20040107, end: 20040109
  24. ALTAT [Concomitant]
     Indication: GASTRIC ULCER
     Dosage: DOSE: 2A
     Route: 041
     Dates: start: 20040106, end: 20040203
  25. SOLCOSERYL [Concomitant]
     Indication: GASTRIC ULCER
     Route: 041
     Dates: start: 20040105, end: 20040203
  26. HUMULIN R [Concomitant]
     Indication: HYPOGLYCAEMIA
     Route: 041
     Dates: start: 20040107, end: 20040203
  27. FUNGIZONE [Concomitant]
     Indication: OESOPHAGEAL CANDIDIASIS
     Route: 048
     Dates: start: 20040212, end: 20040226
  28. SELBEX [Concomitant]
     Indication: GASTRITIS
     Route: 048
     Dates: start: 20040214, end: 20040317
  29. SELBEX [Concomitant]
     Indication: PROPHYLAXIS
     Route: 048
     Dates: start: 20040214, end: 20040317
  30. GASTER [Concomitant]
     Indication: GASTRITIS
     Route: 048
     Dates: start: 20040214, end: 20040317
  31. GASTER [Concomitant]
     Indication: PROPHYLAXIS
     Route: 048
     Dates: start: 20040214, end: 20040317
  32. QUESTRAN [Concomitant]
     Route: 048
     Dates: start: 20040216, end: 20040302
  33. RHEUMATREX [Concomitant]
     Dosage: DOSE: 6MG/WEEK
     Route: 048
     Dates: start: 20040310, end: 20040311
  34. SOLITAX-H [Concomitant]
     Route: 041
     Dates: start: 20040318, end: 20040319
  35. POTACOL-R [Concomitant]
     Route: 041
     Dates: start: 20040318, end: 20040319
  36. BUSCOPAN [Concomitant]
     Route: 041
     Dates: start: 20040318, end: 20040318
  37. PENTAGIN [Concomitant]
     Route: 041
     Dates: start: 20040318, end: 20040318
  38. OPYSTAN [Concomitant]
     Route: 058
     Dates: start: 20040318, end: 20040318
  39. CEFMETAZON [Concomitant]
     Route: 041
     Dates: start: 20040318, end: 20040319

REACTIONS (28)
  - ABDOMINAL PAIN [None]
  - ANAEMIA [None]
  - AUTOIMMUNE DISORDER [None]
  - AUTOIMMUNE HEPATITIS [None]
  - BLOOD ALBUMIN DECREASED [None]
  - BLOOD BILIRUBIN INCREASED [None]
  - BLOOD POTASSIUM ABNORMAL [None]
  - BLOOD SODIUM ABNORMAL [None]
  - BLOOD SODIUM DECREASED [None]
  - BRAIN HERNIATION [None]
  - BRAIN OEDEMA [None]
  - CARDIAC ARREST [None]
  - DISSEMINATED INTRAVASCULAR COAGULATION [None]
  - GENERAL PHYSICAL HEALTH DETERIORATION [None]
  - HAEMORRHAGIC CEREBRAL INFARCTION [None]
  - HYPERSENSITIVITY [None]
  - INFECTION [None]
  - LIVER DISORDER [None]
  - OCULOMUCOCUTANEOUS SYNDROME [None]
  - OESOPHAGEAL CANDIDIASIS [None]
  - OESOPHAGEAL HAEMORRHAGE [None]
  - PROTEIN TOTAL DECREASED [None]
  - PULMONARY FIBROSIS [None]
  - RESPIRATORY ARREST [None]
  - RHABDOMYOLYSIS [None]
  - SEPSIS [None]
  - STAPHYLOCOCCAL INFECTION [None]
  - UPPER RESPIRATORY TRACT INFECTION [None]
